FAERS Safety Report 5569082-8 (Version None)
Quarter: 2007Q4

REPORT INFORMATION
  Report Type: 
  Country: None (occurrence: None)
  Receive Date: 20071220
  Receipt Date: 20070621
  Transmission Date: 20080405
  Serious: No
  Sender: FDA-Public Use
  Company Number: A0661074A

PATIENT
  Age: 51 Year
  Sex: Male

DRUGS (2)
  1. AVODART [Suspect]
     Indication: DRUG USE FOR UNKNOWN INDICATION
     Dosage: .5MG PER DAY
     Route: 065
     Dates: start: 20070601
  2. FLOMAX [Concomitant]
     Dosage: .4MG PER DAY

REACTIONS (1)
  - SEMEN VOLUME DECREASED [None]
